FAERS Safety Report 26012721 (Version 1)
Quarter: 2025Q4

REPORT INFORMATION
  Report Type: Report from Study
  Country: US (occurrence: US)
  Receive Date: 20251107
  Receipt Date: 20251107
  Transmission Date: 20260117
  Serious: Yes (Hospitalization)
  Sender: ABBVIE
  Company Number: US-ABBVIE-6534223

PATIENT
  Sex: Female

DRUGS (1)
  1. RINVOQ [Suspect]
     Active Substance: UPADACITINIB
     Indication: Product used for unknown indication
     Route: 048
     Dates: start: 20240805

REACTIONS (7)
  - Chest pain [Unknown]
  - Arthralgia [Unknown]
  - Gait inability [Unknown]
  - Stress [Unknown]
  - Hypoaesthesia [Unknown]
  - Fall [Unknown]
  - Neuropathy peripheral [Unknown]
